FAERS Safety Report 7568280-1 (Version None)
Quarter: 2011Q2

REPORT INFORMATION
  Report Type: 
  Country: None (occurrence: None)
  Receive Date: 20110623
  Receipt Date: 20110608
  Transmission Date: 20111010
  Serious: Yes (Other)
  Sender: FDA-Public Use
  Company Number: US-JNJFOC-20110608966

PATIENT
  Age: 56 Year
  Sex: Female

DRUGS (11)
  1. HYDROXYCHLOROQUINE SULFATE [Concomitant]
     Dates: start: 20090113
  2. REMICADE [Suspect]
     Route: 042
     Dates: start: 20090122
  3. REMICADE [Suspect]
     Route: 042
     Dates: start: 20090618
  4. REMICADE [Suspect]
     Route: 042
     Dates: start: 20090521
  5. REMICADE [Suspect]
     Route: 042
     Dates: start: 20090813
  6. REMICADE [Suspect]
     Dosage: RECEIVED 8 DOSES
     Route: 042
     Dates: start: 20090910
  7. REMICADE [Suspect]
     Indication: PRODUCT USED FOR UNKNOWN INDICATION
     Route: 042
     Dates: start: 20090423
  8. REMICADE [Suspect]
     Route: 042
     Dates: start: 20090219
  9. PREDNISONE [Concomitant]
     Dosage: 12 DOSES
     Dates: start: 20090205
  10. REMICADE [Suspect]
     Route: 042
     Dates: start: 20090319
  11. METHOTREXATE [Concomitant]
     Dosage: 10 DOSES
     Dates: start: 20090113

REACTIONS (10)
  - PROGRESSIVE MULTIFOCAL LEUKOENCEPHALOPATHY [None]
  - MIGRAINE [None]
  - OSTEOPOROSIS [None]
  - BLINDNESS CORTICAL [None]
  - ACUTE RESPIRATORY FAILURE [None]
  - RHEUMATOID ARTHRITIS [None]
  - CEREBROVASCULAR DISORDER [None]
  - CATARACT [None]
  - MACULOPATHY [None]
  - ENCEPHALOPATHY [None]
